FAERS Safety Report 18871781 (Version 1)
Quarter: 2021Q1

REPORT INFORMATION
  Report Type: Report from Study
  Country: None (occurrence: US)
  Receive Date: 20210210
  Receipt Date: 20210210
  Transmission Date: 20210420
  Serious: Yes (Hospitalization, Other)
  Sender: FDA-Public Use
  Company Number: US-ABBVIE-21K-163-3767623-00

PATIENT
  Age: 92 Year
  Sex: Female

DRUGS (1)
  1. IMBRUVICA [Suspect]
     Active Substance: IBRUTINIB
     Indication: DIFFUSE LARGE B-CELL LYMPHOMA
     Route: 048
     Dates: start: 20210108, end: 20210201

REACTIONS (4)
  - Drug ineffective [Unknown]
  - Off label use [Unknown]
  - Dehydration [Unknown]
  - Gait disturbance [Unknown]

NARRATIVE: CASE EVENT DATE: 202102
